FAERS Safety Report 6793663-7 (Version None)
Quarter: 2010Q2

REPORT INFORMATION
  Report Type: 
  Country: None (occurrence: None)
  Receive Date: 20100624
  Receipt Date: 20090112
  Transmission Date: 20101027
  Serious: No
  Sender: FDA-Public Use
  Company Number: US-PFIZER INC-2009155633

PATIENT
  Age: 36 Year
  Sex: Male

DRUGS (3)
  1. GENOTROPIN [Suspect]
     Indication: OFF LABEL USE
     Dosage: 0.8 MG, UNK
     Route: 058
     Dates: start: 20081101
  2. GENOTROPIN [Suspect]
     Indication: SPERM COUNT ABNORMAL
  3. GENOTROPIN [Suspect]
     Indication: BLOOD TESTOSTERONE DECREASED

REACTIONS (1)
  - TOOTH EXTRACTION [None]
